FAERS Safety Report 5808054-2 (Version None)
Quarter: 2008Q3

REPORT INFORMATION
  Report Type: 
  Country: None (occurrence: None)
  Receive Date: 20080708
  Receipt Date: 20080623
  Transmission Date: 20090109
  Serious: Yes (Life-Threatening, Other)
  Sender: FDA-Public Use
  Company Number: 2008S1010867

PATIENT
  Age: 68 Year
  Sex: Female

DRUGS (8)
  1. FUROSEMIDE [Suspect]
     Indication: DRUG USE FOR UNKNOWN INDICATION
     Dosage: 20 MG
     Dates: start: 20071120
  2. RAMIPRIL [Suspect]
     Indication: LEFT VENTRICULAR HYPERTROPHY
     Dosage: 10 MG; ORAL; 2.5 MG; DAILY, ORAL
     Route: 048
     Dates: start: 20070918, end: 20080115
  3. RAMIPRIL [Suspect]
     Indication: LEFT VENTRICULAR HYPERTROPHY
     Dosage: 10 MG; ORAL; 2.5 MG; DAILY, ORAL
     Route: 048
     Dates: start: 20080115, end: 20080301
  4. DIHYDROCODEINE [Concomitant]
  5. IBUPROFEN [Concomitant]
  6. LEVOTHYROXINE SODIUM [Concomitant]
  7. OMEPRAZOLE [Concomitant]
  8. TIBOLONE [Concomitant]

REACTIONS (8)
  - ASTHMA [None]
  - BRONCHOSPASM [None]
  - CHRONIC OBSTRUCTIVE PULMONARY DISEASE [None]
  - FEELING ABNORMAL [None]
  - HYPOTENSION [None]
  - MALAISE [None]
  - PERICARDIAL EFFUSION [None]
  - RENAL IMPAIRMENT [None]
